FAERS Safety Report 13720220 (Version 1)
Quarter: 2017Q3

REPORT INFORMATION
  Report Type: Report from Study
  Country: KR (occurrence: KR)
  Receive Date: 20170706
  Receipt Date: 20170706
  Transmission Date: 20171127
  Serious: Yes (Hospitalization)
  Sender: FDA-Public Use
  Company Number: KR-AMGEN-KORCT2017102156

PATIENT
  Sex: Male

DRUGS (3)
  1. FILGRASTIM [Suspect]
     Active Substance: FILGRASTIM
     Dosage: 6 MG, Q4WK
     Route: 058
     Dates: start: 20170413, end: 20170515
  2. FILGRASTIM [Suspect]
     Active Substance: FILGRASTIM
     Indication: PROPHYLAXIS
     Dosage: 6 MG, Q4WK
     Route: 058
     Dates: start: 20160510
  3. FILGRASTIM [Suspect]
     Active Substance: FILGRASTIM
     Dosage: 6 MG, Q4WK
     Route: 058
     Dates: start: 20160606

REACTIONS (1)
  - Squamous cell carcinoma of lung [Not Recovered/Not Resolved]

NARRATIVE: CASE EVENT DATE: 20170603
